FAERS Safety Report 8499962-5 (Version None)
Quarter: 2012Q3

REPORT INFORMATION
  Report Type: 
  Country: None (occurrence: None)
  Receive Date: 20120710
  Receipt Date: 20120627
  Transmission Date: 20120928
  Serious: Yes (Death, Congenital Anomaly)
  Sender: FDA-Public Use
  Company Number: IE-ELI_LILLY_AND_COMPANY-IE201206009028

PATIENT
  Sex: Female

DRUGS (8)
  1. DULOXETINE HYDROCHLORIDE [Suspect]
     Dosage: 60 MG, QD
     Route: 064
     Dates: start: 20110901, end: 20111017
  2. LEVOTHYROXINE SODIUM [Concomitant]
     Dosage: 125 UG, QD
     Route: 064
     Dates: start: 20110901
  3. DULOXETINE HYDROCHLORIDE [Suspect]
     Indication: DEPRESSION
     Dosage: 60 MG, QD
     Route: 064
     Dates: start: 20110901, end: 20111017
  4. PROCHLORPERAZINE [Concomitant]
     Dosage: 10 MG, TID
     Route: 064
     Dates: start: 20111228, end: 20111230
  5. LEVOTHYROXINE SODIUM [Concomitant]
     Indication: HYPOTHYROIDISM
     Dosage: 125 UG, QD
     Route: 064
     Dates: start: 20110901
  6. VALDOXAN [Concomitant]
     Indication: DEPRESSION
     Dosage: 50 MG, QD
     Route: 064
     Dates: start: 20110901
  7. VALDOXAN [Concomitant]
     Dosage: 50 MG, QD
     Route: 064
     Dates: start: 20110901
  8. PROCHLORPERAZINE [Concomitant]
     Indication: VOMITING
     Dosage: 10 MG, TID
     Route: 064
     Dates: start: 20111228, end: 20111230

REACTIONS (5)
  - HEART DISEASE CONGENITAL [None]
  - PULMONARY MALFORMATION [None]
  - FOETAL EXPOSURE DURING PREGNANCY [None]
  - STILLBIRTH [None]
  - BRAIN MALFORMATION [None]
